FAERS Safety Report 15773250 (Version 4)
Quarter: 2020Q1

REPORT INFORMATION
  Report Type: Other
  Country: US (occurrence: US)
  Receive Date: 20181228
  Receipt Date: 20200325
  Transmission Date: 20200409
  Serious: Yes (Hospitalization)
  Sender: FDA-Public Use
  Company Number: US-VERASTEM-2018-00088

PATIENT

DRUGS (2)
  1. COPIKTRA [Suspect]
     Active Substance: DUVELISIB
     Indication: CHRONIC LYMPHOCYTIC LEUKAEMIA
     Dosage: 15 MG, BID
     Route: 048
     Dates: start: 20181127, end: 20190103
  2. COPIKTRA [Suspect]
     Active Substance: DUVELISIB
     Dosage: 15 MG, TIW
     Route: 048
     Dates: start: 2019, end: 20190925

REACTIONS (9)
  - Pneumonia [Unknown]
  - Diarrhoea [Recovered/Resolved]
  - Cataract [Recovered/Resolved]
  - Asthenia [Unknown]
  - Skin ulcer [Recovering/Resolving]
  - Prescribed underdose [Recovered/Resolved]
  - White blood cell count increased [Not Recovered/Not Resolved]
  - Lethargy [Unknown]
  - Pyrexia [Recovered/Resolved]

NARRATIVE: CASE EVENT DATE: 20181127
